FAERS Safety Report 14751940 (Version 1)
Quarter: 2018Q2

REPORT INFORMATION
  Report Type: Spontaneous
  Country: US (occurrence: US)
  Receive Date: 20180412
  Receipt Date: 20180412
  Transmission Date: 20180711
  Serious: Yes (Other)
  Sender: FDA-Public Use
  Company Number: US-BEH-2018089477

PATIENT
  Age: 57 Year
  Sex: Female
  Weight: 58.5 kg

DRUGS (19)
  1. HIZENTRA [Suspect]
     Active Substance: HUMAN IMMUNOGLOBULIN G
     Indication: IMMUNODEFICIENCY
     Dosage: 10 G, TOT
     Route: 058
  2. KLONOPIN [Concomitant]
     Active Substance: CLONAZEPAM
  3. ARMOUR THYROID [Concomitant]
     Active Substance: THYROID, PORCINE
  4. SENNA-S                            /00936101/ [Concomitant]
  5. CYCLOBENZAPRINE. [Concomitant]
     Active Substance: CYCLOBENZAPRINE
  6. BIOTIN [Concomitant]
     Active Substance: BIOTIN
  7. SULAR [Concomitant]
     Active Substance: NISOLDIPINE
  8. FLONASE [Concomitant]
     Active Substance: FLUTICASONE PROPIONATE
  9. ELIQUIS [Concomitant]
     Active Substance: APIXABAN
  10. LIDOCAINE. [Concomitant]
     Active Substance: LIDOCAINE
  11. BUSPIRONE [Concomitant]
     Active Substance: BUSPIRONE HYDROCHLORIDE
  12. HIZENTRA [Suspect]
     Active Substance: HUMAN IMMUNOGLOBULIN G
     Dosage: 10 G, UNK
     Route: 058
     Dates: start: 20170116
  13. ACETAMINOPHEN. [Concomitant]
     Active Substance: ACETAMINOPHEN
  14. LINZESS [Concomitant]
     Active Substance: LINACLOTIDE
  15. PRISTIQ EXTENDED-RELEASE [Concomitant]
     Active Substance: DESVENLAFAXINE SUCCINATE
  16. EPINEPHRINE. [Concomitant]
     Active Substance: EPINEPHRINE
  17. PERCOCET                           /00446701/ [Concomitant]
     Active Substance: ACETAMINOPHEN\OXYCODONE HYDROCHLORIDE\OXYCODONE TEREPHTHALATE
  18. ZYRTEC [Concomitant]
     Active Substance: CETIRIZINE HYDROCHLORIDE
  19. DIPHENHYDRAMINE. [Concomitant]
     Active Substance: DIPHENHYDRAMINE

REACTIONS (3)
  - Paralysis [Unknown]
  - Blood potassium decreased [Unknown]
  - Cervical cord compression [Unknown]

NARRATIVE: CASE EVENT DATE: 20180321
